FAERS Safety Report 11115189 (Version 1)
Quarter: 2015Q2

REPORT INFORMATION
  Report Type: Spontaneous
  Country: US (occurrence: None)
  Receive Date: 20150514
  Receipt Date: 20150514
  Transmission Date: 20150821
  Serious: Yes (Hospitalization)
  Sender: FDA-Public Use
  Company Number: None

PATIENT
  Age: 32 Year
  Sex: Female
  Weight: 46.27 kg

DRUGS (1)
  1. MONISTAT 1 COMBINATION PACK [Suspect]
     Active Substance: MICONAZOLE NITRATE
     Indication: FUNGAL INFECTION
     Route: 067

REACTIONS (6)
  - Genital haemorrhage [None]
  - Anuria [None]
  - Burning sensation [None]
  - Urticaria [None]
  - Skin irritation [None]
  - Genital ulceration [None]

NARRATIVE: CASE EVENT DATE: 20150501
